FAERS Safety Report 15030264 (Version 7)
Quarter: 2018Q4

REPORT INFORMATION
  Report Type: Spontaneous
  Country: GR (occurrence: GR)
  Receive Date: 20180619
  Receipt Date: 20181231
  Transmission Date: 20190204
  Serious: Yes (Death)
  Sender: FDA-Public Use
  Company Number: GR-PFIZER INC-2018244048

PATIENT
  Age: 47 Year
  Sex: Female
  Weight: 60 kg

DRUGS (5)
  1. GENTAMICIN. [Suspect]
     Active Substance: GENTAMICIN
     Indication: STAPHYLOCOCCAL INFECTION
     Dosage: 80 MG, UNK
     Route: 042
     Dates: start: 2017
  2. CEFTRIAXONE. [Suspect]
     Active Substance: CEFTRIAXONE
     Indication: STAPHYLOCOCCAL INFECTION
     Dosage: 2 G, UNK
     Route: 042
     Dates: start: 2017
  3. VANCOMYCIN HCL [Suspect]
     Active Substance: VANCOMYCIN HYDROCHLORIDE
     Indication: STAPHYLOCOCCAL INFECTION
     Dosage: 1 G, UNK
     Route: 042
     Dates: start: 2017
  4. LEMTRADA [Concomitant]
     Active Substance: ALEMTUZUMAB
     Indication: RELAPSING-REMITTING MULTIPLE SCLEROSIS
     Dosage: 12 MG, DAILY (FOR FIVE DAYS)
     Route: 042
     Dates: start: 20170727, end: 20170731
  5. METHYLPREDNISOLONE. [Concomitant]
     Active Substance: METHYLPREDNISOLONE
     Indication: RELAPSING-REMITTING MULTIPLE SCLEROSIS
     Dosage: UNK
     Dates: start: 2017

REACTIONS (1)
  - Drug ineffective [Fatal]

NARRATIVE: CASE EVENT DATE: 2017
